FAERS Safety Report 24075745 (Version 3)
Quarter: 2024Q3

REPORT INFORMATION
  Report Type: Report from Study
  Country: CA (occurrence: CA)
  Receive Date: 20240710
  Receipt Date: 20240717
  Transmission Date: 20241017
  Serious: Yes (Hospitalization, Other)
  Sender: HLS THERAPEUTICS
  Company Number: CA-HLS-202401702

PATIENT
  Age: 46 Year
  Sex: Male
  Weight: 81 kg

DRUGS (1)
  1. CLOZARIL [Suspect]
     Active Substance: CLOZAPINE
     Indication: Schizophrenia
     Route: 048
     Dates: start: 20240506

REACTIONS (7)
  - Blood pressure increased [Unknown]
  - Syncope [Unknown]
  - Dizziness [Unknown]
  - Troponin I increased [Recovering/Resolving]
  - Fall [Unknown]
  - Hallucination [Unknown]
  - Electrocardiogram QT prolonged [Unknown]

NARRATIVE: CASE EVENT DATE: 20240704
